FAERS Safety Report 6343065-2 (Version None)
Quarter: 2009Q3

REPORT INFORMATION
  Report Type: 
  Country: None (occurrence: None)
  Receive Date: 20090903
  Receipt Date: 20090826
  Transmission Date: 20100115
  Serious: Yes (Hospitalization)
  Sender: FDA-Public Use
  Company Number: 8024707

PATIENT
  Age: 32 Year
  Sex: Female
  Weight: 46 kg

DRUGS (2)
  1. CDP870 [Suspect]
     Indication: CROHN'S DISEASE
     Dosage: 400 MG 1/2W SC
     Route: 058
     Dates: start: 20070521, end: 20070603
  2. CDP870 [Suspect]
     Indication: CROHN'S DISEASE
     Dosage: 400 MG 1/2W SC
     Route: 058
     Dates: start: 20070608, end: 20070625

REACTIONS (1)
  - STREPTOCOCCAL SEPSIS [None]
